FAERS Safety Report 4645720-9 (Version None)
Quarter: 2005Q2

REPORT INFORMATION
  Report Type: 
  Country: None (occurrence: None)
  Receive Date: 20050427
  Receipt Date: 20050415
  Transmission Date: 20051028
  Serious: Yes (Hospitalization, Other)
  Sender: FDA-Public Use
  Company Number: US-JNJFOC-20050106027

PATIENT
  Age: 74 Year
  Sex: Female

DRUGS (5)
  1. REMICADE [Suspect]
     Indication: RHEUMATOID ARTHRITIS
     Route: 042
  2. DYAZIDE [Concomitant]
  3. DYAZIDE [Concomitant]
  4. SYNTHROID [Concomitant]
  5. CIPROFLOXACIN [Concomitant]

REACTIONS (21)
  - ASTHENIA [None]
  - ATRIAL TACHYCARDIA [None]
  - BLOOD LACTATE DEHYDROGENASE INCREASED [None]
  - BLOOD PRESSURE INCREASED [None]
  - COLITIS ISCHAEMIC [None]
  - CONVULSION [None]
  - CORONARY ARTERY THROMBOSIS [None]
  - DEHYDRATION [None]
  - FEELING ABNORMAL [None]
  - GASTROENTERITIS [None]
  - HAEMORRHAGE [None]
  - HEART RATE DECREASED [None]
  - HYPOTHYROIDISM [None]
  - MALABSORPTION [None]
  - RED BLOOD CELL SCHISTOCYTES PRESENT [None]
  - RENAL FAILURE [None]
  - RENAL TUBULAR NECROSIS [None]
  - SYNCOPE [None]
  - THROMBOTIC THROMBOCYTOPENIC PURPURA [None]
  - THYROIDITIS ACUTE [None]
  - URINARY TRACT INFECTION [None]
